FAERS Safety Report 9527966 (Version 1)
Quarter: 2013Q3

REPORT INFORMATION
  Report Type: Spontaneous
  Country: US (occurrence: US)
  Receive Date: 20130917
  Receipt Date: 20130917
  Transmission Date: 20140515
  Serious: No
  Sender: FDA-Public Use
  Company Number: US-009507513-1309USA006223

PATIENT
  Sex: Female

DRUGS (4)
  1. ASMANEX TWISTHALER [Suspect]
     Indication: ASTHMA
     Dosage: 220 MICROGRAM, BID
     Route: 055
  2. NEXIUM [Concomitant]
     Dosage: UNKNOWN
  3. LIPITOR [Concomitant]
     Dosage: UNKNOWN
  4. THYROID [Concomitant]
     Dosage: UNKNOWN

REACTIONS (3)
  - Dry mouth [Not Recovered/Not Resolved]
  - Lip dry [Not Recovered/Not Resolved]
  - Dry throat [Not Recovered/Not Resolved]
